FAERS Safety Report 23477785 (Version 1)
Quarter: 2024Q1

REPORT INFORMATION
  Report Type: Report from Study
  Country: CA (occurrence: CA)
  Receive Date: 20240204
  Receipt Date: 20240204
  Transmission Date: 20240409
  Serious: No
  Sender: FDA-Public Use
  Company Number: CA-IPSEN Group, Research and Development-2023-18603

PATIENT
  Sex: Male

DRUGS (7)
  1. CABOMETYX [Suspect]
     Active Substance: CABOZANTINIB S-MALATE
     Indication: Renal cell carcinoma
     Dosage: 40 MG DAILY
     Route: 048
     Dates: start: 20230406
  2. LEVOTHYROXINE [Concomitant]
     Active Substance: LEVOTHYROXINE\LEVOTHYROXINE SODIUM
  3. ROSUVASTATIN [Concomitant]
     Active Substance: ROSUVASTATIN
  4. AMLODIPINE [Concomitant]
     Active Substance: AMLODIPINE BESYLATE
  5. PERINDOPRIL [Concomitant]
     Active Substance: PERINDOPRIL
  6. LACOSAMIDE [Concomitant]
     Active Substance: LACOSAMIDE
  7. CETIRIZINE PRN [Concomitant]

REACTIONS (6)
  - Poor quality sleep [Not Recovered/Not Resolved]
  - Ageusia [Recovered/Resolved]
  - Walking aid user [Not Recovered/Not Resolved]
  - Diarrhoea [Recovered/Resolved]
  - Anxiety [Not Recovered/Not Resolved]
  - Illness [Unknown]
